FAERS Safety Report 16230841 (Version 1)
Quarter: 2019Q2

REPORT INFORMATION
  Report Type: Spontaneous
  Country: US (occurrence: US)
  Receive Date: 20190423
  Receipt Date: 20190423
  Transmission Date: 20190711
  Serious: No
  Sender: FDA-Public Use
  Company Number: US-GILEAD-2019-0402851

PATIENT
  Age: 38 Year
  Sex: Female

DRUGS (1)
  1. STRIBILD [Suspect]
     Active Substance: COBICISTAT\ELVITEGRAVIR\EMTRICITABINE\TENOFOVIR DISOPROXIL FUMARATE
     Indication: HIV INFECTION
     Dosage: UNK
     Route: 048
     Dates: start: 2013, end: 2015

REACTIONS (6)
  - Anhedonia [Unknown]
  - Osteopenia [Unknown]
  - Pain [Unknown]
  - Emotional distress [Unknown]
  - Economic problem [Unknown]
  - Anxiety [Unknown]

NARRATIVE: CASE EVENT DATE: 2017
